FAERS Safety Report 5819038-2 (Version None)
Quarter: 2008Q3

REPORT INFORMATION
  Report Type: 
  Country: None (occurrence: None)
  Receive Date: 20080723
  Receipt Date: 20080428
  Transmission Date: 20090109
  Serious: No
  Sender: FDA-Public Use
  Company Number: US-BAYER-200822105NA

PATIENT
  Age: 18 Year
  Sex: Female
  Weight: 66 kg

DRUGS (2)
  1. MIRENA [Suspect]
     Indication: CONTRACEPTION
     Route: 015
     Dates: start: 20080402, end: 20080402
  2. MIRENA [Suspect]
     Route: 015
     Dates: start: 20080402

REACTIONS (2)
  - COMPLICATION OF DEVICE INSERTION [None]
  - VAGINAL DISCHARGE [None]
